FAERS Safety Report 4622103-9 (Version None)
Quarter: 2005Q1

REPORT INFORMATION
  Report Type: 
  Country: None (occurrence: None)
  Receive Date: 20050329
  Receipt Date: 20050314
  Transmission Date: 20050727
  Serious: Yes (Hospitalization)
  Sender: FDA-Public Use
  Company Number: 03-000182

PATIENT
  Age: 31 Year
  Sex: Female

DRUGS (7)
  1. DORYX [Suspect]
     Indication: ROSACEA
     Dosage: 75 MG, QD, ORAL
     Route: 048
     Dates: start: 20030301, end: 20030509
  2. LISINOPRIL [Concomitant]
  3. PROMETRIUM [Concomitant]
  4. DIAZEPAM [Concomitant]
  5. FLUOXETINE [Concomitant]
  6. DARVOCET-N (DEXTROPROPOXYPHENE NAPSILATE, PARACETAMOL) [Concomitant]
  7. METROGEL [Concomitant]

REACTIONS (9)
  - ABDOMINAL DISCOMFORT [None]
  - HEPATIC FAILURE [None]
  - INFLUENZA LIKE ILLNESS [None]
  - JAUNDICE [None]
  - LETHARGY [None]
  - MUSCLE TWITCHING [None]
  - RASH GENERALISED [None]
  - RASH PAPULAR [None]
  - SOMNOLENCE [None]
